FAERS Safety Report 10035104 (Version 1)
Quarter: 2014Q1

REPORT INFORMATION
  Report Type: Spontaneous
  Country: US (occurrence: None)
  Receive Date: 20140306
  Receipt Date: 20140306
  Transmission Date: 20141002
  Serious: Yes (Hospitalization)
  Sender: FDA-Public Use
  Company Number: 163-21880-13062932

PATIENT
  Age: 87 Year
  Sex: Male
  Weight: 90.7 kg

DRUGS (4)
  1. REVLIMID [Suspect]
     Indication: PLASMA CELL MYELOMA
     Dosage: 25 MG, 21 IN 21 D, CAPSULES 05/ /2013 - UNKNOWN
     Route: 048
     Dates: start: 201305
  2. DEXAMETHASONE (DEXAMETHASONE) (TABLETS) [Concomitant]
  3. WARFARIN SODIUM (WARFARIN SODIUM) (TABLETS) [Concomitant]
  4. BENADRYL (DIPHENHYDRAMINE) [Concomitant]

REACTIONS (5)
  - Asthenia [None]
  - White blood cell count decreased [None]
  - Infection [None]
  - Diverticulitis [None]
  - Pneumonia [None]
